FAERS Safety Report 6467482-5 (Version None)
Quarter: 2009Q4

REPORT INFORMATION
  Report Type: 
  Country: None (occurrence: None)
  Receive Date: 20091127
  Receipt Date: 20091118
  Transmission Date: 20100525
  Serious: Yes (Life-Threatening, Other)
  Sender: FDA-Public Use
  Company Number: 2009SP037004

PATIENT
  Age: 71 Year
  Sex: Female
  Weight: 62 kg

DRUGS (5)
  1. ROCURONIUM BROMIDE [Suspect]
     Indication: NEUROMUSCULAR BLOCKING THERAPY
     Dosage: 50 MG;IV
     Route: 042
  2. FENTANYL-100 [Suspect]
     Indication: INDUCTION OF ANAESTHESIA
     Dosage: 100 MG
  3. REMIFENANTIL (REMIFENTANIL) [Suspect]
     Indication: INDUCTION OF ANAESTHESIA
     Dosage: 0.1 MCG
  4. PROPOFOL [Suspect]
     Indication: INDUCTION OF ANAESTHESIA
     Dosage: 110 MG
  5. FLUMARIN (FLOMOXEF SODIUM) [Suspect]
     Indication: DRUG USE FOR UNKNOWN INDICATION

REACTIONS (4)
  - ANAESTHETIC COMPLICATION [None]
  - ANAPHYLACTIC SHOCK [None]
  - ATRIOVENTRICULAR BLOCK SECOND DEGREE [None]
  - ERYTHEMA [None]
